FAERS Safety Report 5417595-1 (Version None)
Quarter: 2007Q3

REPORT INFORMATION
  Report Type: 
  Country: None (occurrence: None)
  Receive Date: 20070718
  Receipt Date: 20070515
  Transmission Date: 20080115
  Serious: Yes (Hospitalization, Other)
  Sender: FDA-Public Use
  Company Number: 2005124556

PATIENT
  Age: 55 Year
  Sex: Male
  Weight: 80.8 kg

DRUGS (6)
  1. CELECOXIB [Suspect]
     Indication: ARTHRALGIA
     Dosage: 400 MG (200 MG, 2 IN 1 D), ORAL
     Route: 048
     Dates: start: 20001120
  2. DILTIAZEM HYDROCHLORIDE [Concomitant]
  3. ACIPHEX [Concomitant]
  4. HYDROCHLOROTHIAZIDE/TRIAMTERENE (HYDROCHLOROTHIAZIDE/TRIAMTERENE) [Concomitant]
  5. ACETYLSALICYLIC ACID SRT [Concomitant]
  6. TYLENOL W/CODEINE NO. 2 (CODEINE PHOSPHATE, PARACETAMOL) [Concomitant]

REACTIONS (1)
  - MYOCARDIAL INFARCTION [None]
